FAERS Safety Report 15993896 (Version 1)
Quarter: 2019Q1

REPORT INFORMATION
  Report Type: Report from Study
  Country: CO (occurrence: CO)
  Receive Date: 20190222
  Receipt Date: 20190222
  Transmission Date: 20190418
  Serious: Yes (Hospitalization)
  Sender: FDA-Public Use
  Company Number: CO-ASTELLAS-2019US005896

PATIENT
  Age: 41 Year
  Sex: Female

DRUGS (2)
  1. TACROLIMUS. [Suspect]
     Active Substance: TACROLIMUS
     Indication: HEART TRANSPLANT
     Dosage: 8 MG, ONCE DAILY (4 MG EVERY 12 HOURS)
     Route: 048
     Dates: start: 20180929
  2. MYCOPHENOLATE [Suspect]
     Active Substance: MYCOPHENOLIC ACID
     Indication: PRODUCT USED FOR UNKNOWN INDICATION
     Dosage: UNK UNK, UNKNOWN FREQ.
     Route: 065

REACTIONS (5)
  - Viral infection [Recovering/Resolving]
  - Blood potassium decreased [Recovering/Resolving]
  - Drug hypersensitivity [Unknown]
  - Blood creatinine increased [Recovering/Resolving]
  - Psychiatric symptom [Recovering/Resolving]

NARRATIVE: CASE EVENT DATE: 201901
